FAERS Safety Report 7412248-2 (Version None)
Quarter: 2011Q2

REPORT INFORMATION
  Report Type: 
  Country: None (occurrence: None)
  Receive Date: 20110413
  Receipt Date: 20110330
  Transmission Date: 20111010
  Serious: Yes (Congenital Anomaly, Other)
  Sender: FDA-Public Use
  Company Number: FR-PFIZER INC-2010011787

PATIENT
  Sex: Female

DRUGS (14)
  1. OLMESARTAN MEDOXOMIL [Suspect]
     Dosage: UNK
     Route: 064
     Dates: end: 20090401
  2. SEROPRAM [Suspect]
     Dosage: UNK
     Route: 064
     Dates: start: 20090401, end: 20090101
  3. DAFALGAN [Concomitant]
  4. OROCAL [Concomitant]
  5. DEROXAT [Suspect]
     Dosage: UNK
     Route: 064
  6. ANAFRANIL [Concomitant]
  7. LYSANXIA [Suspect]
     Dosage: UNK
     Route: 064
     Dates: end: 20090401
  8. INSULIN GLULISINE [Concomitant]
  9. DICYNONE [Suspect]
     Dosage: UNK
     Route: 064
     Dates: end: 20090401
  10. DEXERYL ^PIERRE FABRE^ [Concomitant]
  11. LYRICA [Suspect]
     Dosage: UNK
     Route: 064
     Dates: end: 20090401
  12. TERCIAN [Suspect]
     Dosage: UNK
     Route: 064
  13. DOXIUM [Suspect]
     Dosage: UNK
     Route: 064
     Dates: end: 20090401
  14. NOVORAPID [Concomitant]

REACTIONS (4)
  - CONGENITAL MUSCULOSKELETAL ANOMALY [None]
  - DRUG EXPOSURE DURING PREGNANCY [None]
  - PREMATURE BABY [None]
  - ATRIAL SEPTAL DEFECT [None]
